FAERS Safety Report 5466249-4 (Version None)
Quarter: 2007Q3

REPORT INFORMATION
  Report Type: 
  Country: None (occurrence: None)
  Receive Date: 20070924
  Receipt Date: 20070912
  Transmission Date: 20080115
  Serious: Yes (Other)
  Sender: FDA-Public Use
  Company Number: FR-PFIZER INC-2007076945

PATIENT
  Sex: Female

DRUGS (1)
  1. RELPAX [Suspect]
     Indication: MIGRAINE

REACTIONS (3)
  - CONFUSIONAL STATE [None]
  - DELIRIUM [None]
  - DRUG INEFFECTIVE [None]
